FAERS Safety Report 10616381 (Version 2)
Quarter: 2014Q4

REPORT INFORMATION
  Report Type: Report from Study
  Country: US (occurrence: US)
  Receive Date: 20141201
  Receipt Date: 20141201
  Transmission Date: 20150529
  Serious: Yes (Other)
  Sender: FDA-Public Use
  Company Number: US-BAYER-2014-153036

PATIENT
  Age: 67 Year
  Sex: Male

DRUGS (2)
  1. STIVARGA [Suspect]
     Active Substance: REGORAFENIB
     Indication: COLORECTAL CANCER METASTATIC
     Dosage: 80 MG, DAILY
     Route: 048
     Dates: start: 20141010, end: 20141023
  2. STIVARGA [Suspect]
     Active Substance: REGORAFENIB
     Indication: COLORECTAL CANCER METASTATIC
     Dosage: 120 MG, QD
     Route: 048
     Dates: start: 20141024, end: 20141120

REACTIONS (13)
  - Dysphonia [None]
  - Rhinitis [None]
  - Pharyngeal oedema [None]
  - Headache [None]
  - Fatigue [None]
  - Cough [None]
  - Chest discomfort [None]
  - Visual impairment [None]
  - Colorectal cancer metastatic [None]
  - Stomatitis [None]
  - Oral pain [None]
  - Tonsillar inflammation [None]
  - Eye pain [None]

NARRATIVE: CASE EVENT DATE: 201410
